FAERS Safety Report 5222056-9 (Version None)
Quarter: 2007Q1

REPORT INFORMATION
  Report Type: 
  Country: None (occurrence: None)
  Receive Date: 20070129
  Receipt Date: 20060426
  Transmission Date: 20070707
  Serious: No
  Sender: FDA-Public Use
  Company Number: US-GLAXOSMITHKLINE-A0603669A

PATIENT
  Sex: Female
  Weight: 63.2 kg

DRUGS (2)
  1. WELLBUTRIN [Suspect]
     Indication: DEPRESSION
     Dosage: 150MG PER DAY
     Route: 048
     Dates: start: 20050101
  2. CYMBALTA [Concomitant]
     Indication: DEPRESSION
     Route: 065

REACTIONS (1)
  - BLEPHAROSPASM [None]
